FAERS Safety Report 6782332-5 (Version None)
Quarter: 2010Q2

REPORT INFORMATION
  Report Type: 
  Country: None (occurrence: None)
  Receive Date: 20100616
  Receipt Date: 20100602
  Transmission Date: 20101027
  Serious: Yes (Other)
  Sender: FDA-Public Use
  Company Number: 1-22850977

PATIENT
  Age: 46 Year
  Sex: Female

DRUGS (5)
  1. FENTANYL [Suspect]
     Indication: ANALGESIC THERAPY
     Dosage: 50 MCG, X 1 DOSE, INTRAVENOUS
     Route: 042
  2. SERTRALINE HCL [Concomitant]
  3. CERTIRIZINE [Concomitant]
  4. MIDAZOLAM HCL [Concomitant]
  5. PROPOFOL [Concomitant]

REACTIONS (11)
  - AGGRESSION [None]
  - ALANINE AMINOTRANSFERASE INCREASED [None]
  - ASPARTATE AMINOTRANSFERASE INCREASED [None]
  - BLOOD CREATINE PHOSPHOKINASE INCREASED [None]
  - DRUG INTERACTION [None]
  - MUSCLE RIGIDITY [None]
  - OXYGEN SATURATION DECREASED [None]
  - RESPIRATORY RATE INCREASED [None]
  - SEROTONIN SYNDROME [None]
  - SOMNOLENCE [None]
  - UNRESPONSIVE TO STIMULI [None]
